FAERS Safety Report 9599414 (Version 1)
Quarter: 2013Q4

REPORT INFORMATION
  Report Type: Spontaneous
  Country: US (occurrence: US)
  Receive Date: 20131004
  Receipt Date: 20131004
  Transmission Date: 20140711
  Serious: No
  Sender: FDA-Public Use
  Company Number: US-AMGEN-USASP2013029032

PATIENT
  Age: 60 Year
  Sex: Male

DRUGS (33)
  1. ENBREL [Suspect]
     Indication: RHEUMATOID ARTHRITIS
     Dosage: UNK
     Route: 058
  2. ADVAIR [Concomitant]
     Dosage: UNK
  3. NASONEX [Concomitant]
     Dosage: UNK
  4. ZYRTEC [Concomitant]
     Dosage: UNK
  5. SINGULAIR [Concomitant]
     Dosage: UNK
  6. SPIRIVA [Concomitant]
     Dosage: UNK
  7. NEXIUM                             /01479302/ [Concomitant]
     Dosage: UNK
  8. XOPENEX HFA [Concomitant]
     Dosage: UNK, INHALER + NEBULIZER
  9. MUCINEX [Concomitant]
     Dosage: UNK
  10. PREDNISONE [Concomitant]
     Dosage: UNK
  11. LASIX                              /00032601/ [Concomitant]
     Dosage: UNK
  12. MAG                                /07370001/ [Concomitant]
     Dosage: UNK
  13. LIDODERM [Concomitant]
     Dosage: UNK
  14. FERROUS SULFATE [Concomitant]
     Dosage: UNK
  15. MORPHINE SULFATE [Concomitant]
     Dosage: UNK
  16. LEXAPRO [Concomitant]
     Dosage: UNK
  17. MECLIZINE                          /00072801/ [Concomitant]
     Dosage: UNK
  18. PERCOCET                           /00446701/ [Concomitant]
     Dosage: UNK
  19. VALIUM                             /00017001/ [Concomitant]
     Dosage: UNK
  20. COUMADIN                           /00014802/ [Concomitant]
     Dosage: UNK
  21. ATIVAN [Concomitant]
     Dosage: UNK
  22. FOLIC ACID [Concomitant]
     Dosage: UNK
  23. METHOTREXATE [Concomitant]
     Dosage: UNK
  24. SULFASALAZINE [Concomitant]
     Dosage: UNK
  25. NEURONTIN [Concomitant]
     Dosage: UNK
  26. BYSTOLIC [Concomitant]
     Dosage: UNK
  27. SIMVASTATIN [Concomitant]
     Dosage: UNK
  28. LISINOPRIL [Concomitant]
     Dosage: UNK
  29. NITROQUICK [Concomitant]
     Dosage: UNK
  30. CALCITROL                          /00508501/ [Concomitant]
     Dosage: UNK
  31. MULTIVITAMINS, PLAIN [Concomitant]
     Dosage: UNK
  32. VITAMIN D                          /00107901/ [Concomitant]
     Dosage: UNK
  33. HUMIRA [Concomitant]
     Dosage: UNK
     Dates: start: 200606

REACTIONS (1)
  - Rash generalised [Unknown]
